FAERS Safety Report 8373416-9 (Version None)
Quarter: 2012Q2

REPORT INFORMATION
  Report Type: 
  Country: None (occurrence: None)
  Receive Date: 20120521
  Receipt Date: 20120113
  Transmission Date: 20120825
  Serious: Yes (Hospitalization)
  Sender: FDA-Public Use
  Company Number: US-TEVA-2011005595

PATIENT
  Sex: Female
  Weight: 77.18 kg

DRUGS (9)
  1. GABAPENTIN [Concomitant]
     Dates: start: 20111001
  2. DIPHENHYDRAMINE HYDROCHLORIDE [Concomitant]
  3. ACYCLOVIR [Concomitant]
     Dates: start: 20100101
  4. PANTOPRAZOLE [Concomitant]
     Dates: start: 20111001
  5. ONDANSETRON [Concomitant]
  6. DEXAMETHASONE [Concomitant]
  7. ASPIRIN [Concomitant]
     Dates: start: 20080101
  8. TREANDA [Suspect]
     Indication: NON-HODGKIN'S LYMPHOMA
     Dosage: EVERY 3 WEEKS, CYCLIC
     Route: 042
     Dates: start: 20111004, end: 20120116
  9. METOPROLOL [Concomitant]
     Dates: start: 20060101

REACTIONS (6)
  - INFUSION SITE HAEMATOMA [None]
  - NAUSEA [None]
  - INFUSION SITE REACTION [None]
  - INFUSION SITE PHLEBITIS [None]
  - CONSTIPATION [None]
  - VOMITING [None]
